FAERS Safety Report 14291909 (Version 2)
Quarter: 2018Q1

REPORT INFORMATION
  Report Type: Report from Study
  Country: CA (occurrence: CA)
  Receive Date: 20171215
  Receipt Date: 20180123
  Transmission Date: 20180509
  Serious: Yes (Other)
  Sender: FDA-Public Use
  Company Number: CA-JNJFOC-20170625208

PATIENT
  Age: 31 Year
  Sex: Male
  Weight: 75.3 kg

DRUGS (6)
  1. REMICADE [Suspect]
     Active Substance: INFLIXIMAB
     Indication: CROHN^S DISEASE
     Route: 042
     Dates: start: 20170627
  2. REMICADE [Suspect]
     Active Substance: INFLIXIMAB
     Indication: PSORIASIS
     Route: 042
     Dates: start: 20170627
  3. REMICADE [Suspect]
     Active Substance: INFLIXIMAB
     Indication: PSORIASIS
     Dosage: INFUSION NO: 13
     Route: 042
     Dates: start: 20171207
  4. REMICADE [Suspect]
     Active Substance: INFLIXIMAB
     Indication: PSORIASIS
     Dosage: ALSO REPORTED AS 600 MG.
     Route: 042
     Dates: start: 20160129
  5. REMICADE [Suspect]
     Active Substance: INFLIXIMAB
     Indication: CROHN^S DISEASE
     Dosage: ALSO REPORTED AS 600 MG.
     Route: 042
     Dates: start: 20160129
  6. REMICADE [Suspect]
     Active Substance: INFLIXIMAB
     Indication: CROHN^S DISEASE
     Dosage: INFUSION NO: 13
     Route: 042
     Dates: start: 20171207

REACTIONS (9)
  - Intestinal resection [Unknown]
  - Drug effect decreased [Unknown]
  - Product use issue [Unknown]
  - General physical health deterioration [Recovering/Resolving]
  - Crohn^s disease [Recovering/Resolving]
  - Rectal abscess [Unknown]
  - Proctectomy [Unknown]
  - Off label use [Unknown]
  - Subcutaneous abscess [Not Recovered/Not Resolved]

NARRATIVE: CASE EVENT DATE: 20170626
